FAERS Safety Report 7941790-0 (Version None)
Quarter: 2011Q4

REPORT INFORMATION
  Report Type: 
  Country: None (occurrence: None)
  Receive Date: 20111122
  Receipt Date: 20111122
  Transmission Date: 20120403
  Serious: Yes (Hospitalization)
  Sender: FDA-Public Use
  Company Number: None

PATIENT

DRUGS (4)
  1. ALLOPURINOL [Suspect]
     Indication: CHEMOTHERAPY
     Dosage: 300 MG EVERY DAY PO
     Route: 048
     Dates: start: 20111018, end: 20111028
  2. SULFAMETHOXAZOLE AND TRIMETHOPRIM [Suspect]
     Indication: LYMPHOMA
     Dosage: 1 TAB OTHER PO
     Route: 048
     Dates: start: 20111003, end: 20111028
  3. SULFAMETHOXAZOLE AND TRIMETHOPRIM [Suspect]
     Indication: CHRONIC LYMPHOCYTIC LEUKAEMIA
     Dosage: 1 TAB OTHER PO
     Route: 048
     Dates: start: 20111003, end: 20111028
  4. SULFAMETHOXAZOLE AND TRIMETHOPRIM [Suspect]
     Indication: PRURITUS
     Dosage: 1 TAB OTHER PO
     Route: 048
     Dates: start: 20111003, end: 20111028

REACTIONS (1)
  - RASH [None]
